FAERS Safety Report 8463261-8 (Version None)
Quarter: 2012Q2

REPORT INFORMATION
  Report Type: 
  Country: None (occurrence: None)
  Receive Date: 20120625
  Receipt Date: 20120619
  Transmission Date: 20120825
  Serious: Yes (Death)
  Sender: FDA-Public Use
  Company Number: US-BRISTOL-MYERS SQUIBB COMPANY-16696742

PATIENT
  Age: 67 Year
  Sex: Female

DRUGS (1)
  1. YERVOY [Suspect]
     Indication: MALIGNANT NEOPLASM OF CONJUNCTIVA

REACTIONS (1)
  - DEATH [None]
